FAERS Safety Report 7194548-7 (Version None)
Quarter: 2010Q4

REPORT INFORMATION
  Report Type: 
  Country: None (occurrence: None)
  Receive Date: 20101223
  Receipt Date: 20100927
  Transmission Date: 20110411
  Serious: No
  Sender: FDA-Public Use
  Company Number: US-AMGEN-TCS441475

PATIENT

DRUGS (3)
  1. ENBREL [Suspect]
     Indication: RHEUMATOID ARTHRITIS
     Dosage: 50 MG, QWK
     Route: 058
     Dates: start: 20090901
  2. METHOTREXATE [Concomitant]
     Dosage: UNK UNK, UNK
  3. INFLUENZA VACCINE [Concomitant]
     Dosage: UNK UNK, UNK
     Dates: start: 20100101

REACTIONS (9)
  - BACK PAIN [None]
  - BLISTER [None]
  - EAR INFECTION [None]
  - EAR PAIN [None]
  - OSTEOPOROSIS [None]
  - PAIN IN EXTREMITY [None]
  - PRURITUS [None]
  - RASH [None]
  - RHEUMATOID ARTHRITIS [None]
